FAERS Safety Report 7383855-0 (Version None)
Quarter: 2011Q1

REPORT INFORMATION
  Report Type: 
  Country: None (occurrence: None)
  Receive Date: 20110330
  Receipt Date: 20110317
  Transmission Date: 20110831
  Serious: Yes (Life-Threatening)
  Sender: FDA-Public Use
  Company Number: US-BAYER-2011-024184

PATIENT
  Sex: Male

DRUGS (3)
  1. ANTIHYPERTENSIVES [Concomitant]
  2. CHOLESTEROL- AND TRIGLYCERIDE REDUCERS [Concomitant]
  3. AVELOX [Suspect]
     Indication: PNEUMONIA
     Dosage: 400 MG, QD
     Route: 048
     Dates: start: 20110311

REACTIONS (7)
  - DEPRESSION [None]
  - RESTLESSNESS [None]
  - DIZZINESS [None]
  - DIARRHOEA [None]
  - PNEUMONIA [None]
  - FAECES DISCOLOURED [None]
  - CONFUSIONAL STATE [None]
